FAERS Safety Report 7992276-9 (Version None)
Quarter: 2011Q4

REPORT INFORMATION
  Report Type: 
  Country: None (occurrence: None)
  Receive Date: 20111219
  Receipt Date: 20110408
  Transmission Date: 20120403
  Serious: No
  Sender: FDA-Public Use
  Company Number: US-ASTRAZENECA-2011SE21187

PATIENT
  Sex: Female

DRUGS (6)
  1. METFORMIN HCL [Concomitant]
  2. CRESTOR [Suspect]
     Route: 048
  3. CYMBALTA [Concomitant]
  4. LISINOPRIL [Concomitant]
  5. INDAPAMIDE [Concomitant]
  6. FINOFIORATE [Concomitant]

REACTIONS (2)
  - GASTROOESOPHAGEAL REFLUX DISEASE [None]
  - NAUSEA [None]
